FAERS Safety Report 15353115 (Version 5)
Quarter: 2019Q2

REPORT INFORMATION
  Report Type: Report from Study
  Country: US (occurrence: US)
  Receive Date: 20180905
  Receipt Date: 20190408
  Transmission Date: 20190711
  Serious: Yes (Death, Hospitalization, Other)
  Sender: FDA-Public Use
  Company Number: US-ACTELION-A-NJ2018-178193

PATIENT
  Age: 80 Year
  Sex: Female
  Weight: 88.44 kg

DRUGS (3)
  1. OPSUMIT [Suspect]
     Active Substance: MACITENTAN
     Indication: PULMONARY ARTERIAL HYPERTENSION
     Dosage: 10 MG, QD
     Route: 048
     Dates: start: 201704, end: 20190309
  2. SILDENAFIL. [Concomitant]
     Active Substance: SILDENAFIL
     Dosage: UNK
     Dates: start: 201704, end: 20190309
  3. WARFARIN [Concomitant]
     Active Substance: WARFARIN

REACTIONS (16)
  - Urinary tract infection [Unknown]
  - Pulmonary sarcoidosis [Fatal]
  - Hospice care [Unknown]
  - Renal failure [Unknown]
  - Fluid overload [Unknown]
  - Dyspnoea [Recovering/Resolving]
  - Dizziness [Unknown]
  - Dehydration [Unknown]
  - Oxygen saturation increased [Unknown]
  - Syncope [Unknown]
  - Pulmonary hypertension [Fatal]
  - Condition aggravated [Unknown]
  - Dyspnoea exertional [Not Recovered/Not Resolved]
  - Diabetes mellitus [Unknown]
  - Oedema [Unknown]
  - Atrial fibrillation [Unknown]

NARRATIVE: CASE EVENT DATE: 20180810
